FAERS Safety Report 4417377-3 (Version None)
Quarter: 2004Q3

REPORT INFORMATION
  Report Type: 
  Country: None (occurrence: None)
  Receive Date: 20040802
  Receipt Date: 20040720
  Transmission Date: 20050211
  Serious: Yes (Hospitalization)
  Sender: FDA-Public Use
  Company Number: US-JNJFOC-20040101522

PATIENT
  Age: 70 Year
  Sex: Female

DRUGS (8)
  1. REMICADE [Suspect]
     Indication: RHEUMATOID ARTHRITIS
     Dosage: SEE IMAGE
     Route: 042
     Dates: start: 20031216
  2. REMICADE [Suspect]
     Indication: RHEUMATOID ARTHRITIS
     Dosage: SEE IMAGE
     Route: 042
     Dates: start: 20031230
  3. FELDENE [Concomitant]
  4. LISINOPRIL [Concomitant]
  5. FOSAMAX (ALENDRONADE SODIUM) [Concomitant]
  6. PROPICILLIN (PROPICILLIN) [Concomitant]
  7. PIROXICAM [Concomitant]
  8. PREDNISONE [Concomitant]

REACTIONS (6)
  - BACK PAIN [None]
  - BURNING SENSATION [None]
  - CHEST PAIN [None]
  - DYSPNOEA [None]
  - FLUSHING [None]
  - WHITE BLOOD CELL COUNT INCREASED [None]
